FAERS Safety Report 11472935 (Version 4)
Quarter: 2021Q1

REPORT INFORMATION
  Report Type: Spontaneous
  Country: US (occurrence: US)
  Receive Date: 20150908
  Receipt Date: 20210223
  Transmission Date: 20210419
  Serious: Yes (Other)
  Sender: FDA-Public Use
  Company Number: US-JAZZ-2013-US-002917

PATIENT
  Age: 35 Year
  Sex: Female

DRUGS (21)
  1. XYREM [Suspect]
     Active Substance: SODIUM OXYBATE
     Dosage: DOSE ADJUSTMENT
     Route: 048
     Dates: start: 201212, end: 201310
  2. SEROQUEL [Suspect]
     Active Substance: QUETIAPINE FUMARATE
     Indication: BIPOLAR DISORDER
     Dosage: 200 MG, QD
     Route: 048
  3. KLONOPIN [Concomitant]
     Active Substance: CLONAZEPAM
     Indication: ANXIETY
  4. XYREM [Suspect]
     Active Substance: SODIUM OXYBATE
     Indication: NARCOLEPSY
     Dosage: 2G, BID
     Route: 048
     Dates: start: 201212, end: 201212
  5. XYREM [Suspect]
     Active Substance: SODIUM OXYBATE
     Dosage: 4.5 G, SECOND DOSE
     Route: 048
     Dates: start: 2013
  6. RITALIN [Suspect]
     Active Substance: METHYLPHENIDATE HYDROCHLORIDE
     Dosage: 15 MG, TID
     Route: 048
  7. XYREM [Suspect]
     Active Substance: SODIUM OXYBATE
     Dosage: 5 G, SECOND DOSE
     Route: 048
     Dates: start: 2014
  8. RITALIN [Suspect]
     Active Substance: METHYLPHENIDATE HYDROCHLORIDE
     Dosage: 10 MG, TID
     Route: 048
  9. SEROQUEL [Suspect]
     Active Substance: QUETIAPINE FUMARATE
     Dosage: 100 MG, QD
     Route: 048
  10. NUCYNTA [Suspect]
     Active Substance: TAPENTADOL HYDROCHLORIDE
     Indication: PAIN
  11. XYREM [Suspect]
     Active Substance: SODIUM OXYBATE
     Dosage: 7.0 G, FIRST DOSE
     Route: 048
     Dates: start: 201310
  12. XYREM [Suspect]
     Active Substance: SODIUM OXYBATE
     Dosage: 6G, FIRST DOSE
     Route: 048
     Dates: start: 2013
  13. XYREM [Suspect]
     Active Substance: SODIUM OXYBATE
     Dosage: 7G, QD, FIRST DOSE
     Route: 048
     Dates: start: 2014
  14. MONONESSA [Concomitant]
     Active Substance: ETHINYL ESTRADIOL\NORGESTIMATE
     Indication: CONTRACEPTION
     Dosage: DOSE UNSPECIFIED
     Route: 048
  15. XYREM [Suspect]
     Active Substance: SODIUM OXYBATE
     Dosage: 5.0 G, SECOND DOSE
     Route: 048
     Dates: start: 201310
  16. XYREM [Suspect]
     Active Substance: SODIUM OXYBATE
     Dosage: 6.5 G, FIRST DOSE
     Route: 048
  17. TRAMADOL. [Suspect]
     Active Substance: TRAMADOL
     Indication: PRODUCT USED FOR UNKNOWN INDICATION
  18. KLONOPIN [Concomitant]
     Active Substance: CLONAZEPAM
     Indication: BIPOLAR DISORDER
     Dosage: 1 MG, QD
     Route: 048
  19. XYREM [Suspect]
     Active Substance: SODIUM OXYBATE
     Dosage: 4 G, SECOND DOSE
     Route: 048
  20. RITALIN [Suspect]
     Active Substance: METHYLPHENIDATE HYDROCHLORIDE
     Indication: PRODUCT USED FOR UNKNOWN INDICATION
     Dosage: 20 MG, TID
     Route: 048
  21. LYRICA [Concomitant]
     Active Substance: PREGABALIN
     Indication: NEURALGIA
     Dosage: 100 MG, QD
     Route: 048

REACTIONS (13)
  - Weight decreased [Not Recovered/Not Resolved]
  - Tooth disorder [Not Recovered/Not Resolved]
  - Hypersensitivity [Not Recovered/Not Resolved]
  - Neck pain [Recovering/Resolving]
  - Fatigue [Unknown]
  - Fibromyalgia [Not Recovered/Not Resolved]
  - Sinusitis [Not Recovered/Not Resolved]
  - Pre-existing condition improved [Unknown]
  - Back pain [Recovering/Resolving]
  - Product dose omission issue [Unknown]
  - Drug ineffective [Unknown]
  - Feeling abnormal [Unknown]
  - Therapeutic response unexpected [Unknown]

NARRATIVE: CASE EVENT DATE: 201212
